FAERS Safety Report 6287999-6 (Version None)
Quarter: 2009Q3

REPORT INFORMATION
  Report Type: 
  Country: None (occurrence: None)
  Receive Date: 20090729
  Receipt Date: 20090722
  Transmission Date: 20100115
  Serious: Yes (Death)
  Sender: FDA-Public Use
  Company Number: US-ROCHE-612355

PATIENT
  Sex: Female
  Weight: 70.3 kg

DRUGS (1)
  1. XELODA [Suspect]
     Indication: BREAST CANCER
     Dosage: TEMPORARILY OFF; FORM: PILLS; FREQUENCY: MORNING AND EVENING
     Route: 048
     Dates: start: 20090623

REACTIONS (6)
  - DEATH [None]
  - DRY SKIN [None]
  - ERYTHEMA [None]
  - HEADACHE [None]
  - NAUSEA [None]
  - PAIN [None]
